FAERS Safety Report 14459659 (Version 4)
Quarter: 2018Q2

REPORT INFORMATION
  Report Type: Spontaneous
  Country: JP (occurrence: JP)
  Receive Date: 20180130
  Receipt Date: 20180601
  Transmission Date: 20180711
  Serious: Yes (Hospitalization, Other)
  Sender: FDA-Public Use
  Company Number: JP-SA-2018SA022390

PATIENT
  Age: 17 Year
  Sex: Male

DRUGS (13)
  1. CEFTAZIDIME. [Suspect]
     Active Substance: CEFTAZIDIME
     Indication: PSEUDOMONAS INFECTION
     Dosage: 1 G,TID
     Route: 065
  2. VANCOMYCIN [Suspect]
     Active Substance: VANCOMYCIN
     Indication: WOUND INFECTION
     Dosage: 1.5 G,BID
     Route: 065
  3. FOSPHENYTOIN SODIUM. [Suspect]
     Active Substance: FOSPHENYTOIN SODIUM
     Indication: CLONIC CONVULSION
     Dosage: UNK UNK,UNK
     Route: 065
  4. SULFAMETHOXAZOLE/TRIMETHOPRIM [Suspect]
     Active Substance: SULFAMETHOXAZOLE\TRIMETHOPRIM
     Indication: INFECTION
     Dosage: 2 G,BID
     Route: 065
  5. LINEZOLID. [Suspect]
     Active Substance: LINEZOLID
     Indication: INFECTION
     Dosage: 600 MG,QD
     Route: 065
  6. GLYCERIN [GLYCEROL] [Concomitant]
     Indication: INTRACRANIAL PRESSURE INCREASED
     Dosage: UNK UNK,UNK
     Route: 065
  7. CEFTRIAXONE SODIUM. [Suspect]
     Active Substance: CEFTRIAXONE SODIUM
     Indication: INFECTION
     Dosage: 2 G,BID
     Route: 065
  8. CEFOTAXIME SODIUM [Suspect]
     Active Substance: CEFOTAXIME SODIUM
     Indication: INFECTION PROPHYLAXIS
     Dosage: 1 G,QID
     Route: 065
  9. MEROPENEM. [Suspect]
     Active Substance: MEROPENEM
     Indication: WOUND INFECTION
     Dosage: 2 G,TID
     Route: 065
  10. CEFEPIME HYDROCHLORIDE. [Concomitant]
     Active Substance: CEFEPIME HYDROCHLORIDE
     Dosage: 1 G,BID
     Route: 065
  11. LEVOFLOXACIN. [Suspect]
     Active Substance: LEVOFLOXACIN
     Indication: INFECTION
     Dosage: 500 MG,QD
     Route: 065
  12. VASOPRESSIN. [Suspect]
     Active Substance: VASOPRESSIN
     Indication: DIABETES INSIPIDUS
     Dosage: UNK UNK,UNK
     Route: 065
  13. CEFAZOLIN SODIUM. [Suspect]
     Active Substance: CEFAZOLIN SODIUM
     Indication: URINARY TRACT INFECTION
     Dosage: 1 G,TID
     Route: 065

REACTIONS (3)
  - Histiocytosis haematophagic [Recovered/Resolved]
  - Urinary tract infection [Unknown]
  - Hepatic function abnormal [Unknown]
